FAERS Safety Report 17630691 (Version 1)
Quarter: 2020Q2

REPORT INFORMATION
  Report Type: Spontaneous
  Country: US (occurrence: US)
  Receive Date: 20200403
  Receipt Date: 20200403
  Transmission Date: 20200713
  Serious: No
  Sender: FDA-Public Use
  Company Number: None

PATIENT
  Age: 60 Year
  Sex: Female

DRUGS (19)
  1. CYCLOBENZAPR [Concomitant]
     Active Substance: CYCLOBENZAPRINE
  2. FLUOXETINE [Concomitant]
     Active Substance: FLUOXETINE HYDROCHLORIDE
  3. BUSPIRONE [Concomitant]
     Active Substance: BUSPIRONE HYDROCHLORIDE
  4. IBUPROFEN. [Concomitant]
     Active Substance: IBUPROFEN
  5. TELMISA/HCTZ [Concomitant]
  6. BUPROPN HCL [Concomitant]
     Active Substance: BUPROPION HYDROCHLORIDE
  7. OXYCODONE AND ACETAMINOPHEN [Concomitant]
     Active Substance: ACETAMINOPHEN\OXYCODONE HYDROCHLORIDE
  8. PANTOPRAZOLE [Concomitant]
     Active Substance: PANTOPRAZOLE
  9. PILOCARPINE. [Concomitant]
     Active Substance: PILOCARPINE
  10. CEPHALEXIN. [Concomitant]
     Active Substance: CEPHALEXIN
  11. BUDESONIDE. [Concomitant]
     Active Substance: BUDESONIDE
  12. DICLOFENAC [Concomitant]
     Active Substance: DICLOFENAC
  13. DIAZEPAM. [Concomitant]
     Active Substance: DIAZEPAM
  14. ACTEMRA ACTPEN [Suspect]
     Active Substance: TOCILIZUMAB
     Indication: RHEUMATOID ARTHRITIS
     Dosage: ?          OTHER FREQUENCY:EVERY OTHER WEEK;??
     Route: 058
     Dates: start: 20191102
  15. CLINDAMYCIN. [Concomitant]
     Active Substance: CLINDAMYCIN
  16. PRAMIPEXOLE. [Concomitant]
     Active Substance: PRAMIPEXOLE
  17. ALENDRONATE [Concomitant]
     Active Substance: ALENDRONATE SODIUM
  18. GABAPENTIN. [Concomitant]
     Active Substance: GABAPENTIN
  19. HYDROXYCHLOR [Concomitant]
     Active Substance: HYDROXYCHLOROQUINE

REACTIONS (2)
  - Therapy cessation [None]
  - Liver disorder [None]

NARRATIVE: CASE EVENT DATE: 20200403
